FAERS Safety Report 9453165 (Version 1)
Quarter: 2013Q3

REPORT INFORMATION
  Report Type: Spontaneous
  Country: US (occurrence: US)
  Receive Date: 20130812
  Receipt Date: 20130812
  Transmission Date: 20140515
  Serious: Yes (Hospitalization, Other)
  Sender: FDA-Public Use
  Company Number: US-NOVOPROD-384714

PATIENT
  Age: 1 Day
  Sex: Male

DRUGS (1)
  1. NOVOSEVEN [Suspect]
     Indication: OFF LABEL USE
     Dosage: SINGLE
     Route: 042
     Dates: start: 20080728, end: 20080728

REACTIONS (7)
  - Brain injury [Unknown]
  - Brain midline shift [Unknown]
  - Subdural haematoma [Unknown]
  - Brain oedema [Unknown]
  - Cerebral infarction [Unknown]
  - Cerebral artery thrombosis [Unknown]
  - Off label use [Unknown]
